FAERS Safety Report 4504675-8 (Version None)
Quarter: 2004Q3

REPORT INFORMATION
  Report Type: 
  Country: None (occurrence: None)
  Receive Date: 20040927
  Receipt Date: 20040709
  Transmission Date: 20050211
  Serious: No
  Sender: FDA-Public Use
  Company Number: USA040772260

PATIENT
  Sex: Female

DRUGS (3)
  1. STRATTERA [Suspect]
     Indication: ATTENTION DEFICIT/HYPERACTIVITY DISORDER
     Dosage: 40 MG/1 DAY
     Dates: start: 20040601
  2. SYNTHROID [Concomitant]
  3. WELLBUTRIN [Concomitant]

REACTIONS (3)
  - BLADDER SPASM [None]
  - NAUSEA [None]
  - URINARY RETENTION [None]
